FAERS Safety Report 7335750-0 (Version None)
Quarter: 2011Q1

REPORT INFORMATION
  Report Type: 
  Country: None (occurrence: None)
  Receive Date: 20110307
  Receipt Date: 20110304
  Transmission Date: 20110831
  Serious: Yes (Hospitalization)
  Sender: FDA-Public Use
  Company Number: Z0002113C

PATIENT
  Sex: Female
  Weight: 39.8 kg

DRUGS (3)
  1. PACLITAXEL [Suspect]
     Indication: GASTRIC CANCER
     Dosage: 80MGM2 CYCLIC
     Route: 042
     Dates: start: 20091021
  2. CEFUROXIME [Concomitant]
     Indication: PROPHYLAXIS
     Dosage: 1500MG THREE TIMES PER DAY
     Route: 042
     Dates: start: 20091217
  3. LAPATINIB [Suspect]
     Indication: GASTRIC CANCER
     Dosage: 1500MG PER DAY
     Route: 048
     Dates: start: 20091021

REACTIONS (1)
  - DECREASED APPETITE [None]
